FAERS Safety Report 9290714 (Version 2)
Quarter: 2013Q4

REPORT INFORMATION
  Report Type: Spontaneous
  Country: US (occurrence: US)
  Receive Date: 20130515
  Receipt Date: 20131030
  Transmission Date: 20140711
  Serious: Yes (Hospitalization)
  Sender: FDA-Public Use
  Company Number: US-ACTELION-A-NJ2013-83006

PATIENT
  Age: 80 Year
  Sex: Female

DRUGS (4)
  1. TRACLEER [Suspect]
     Indication: PULMONARY ARTERIAL HYPERTENSION
     Dosage: UNK
     Route: 048
     Dates: start: 20091105
  2. SILDENAFIL [Concomitant]
  3. CRESTOR [Concomitant]
  4. ASPIRIN [Concomitant]

REACTIONS (4)
  - Thrombosis [Recovered/Resolved]
  - Ischaemic stroke [Recovering/Resolving]
  - Hemiparesis [Recovering/Resolving]
  - Urinary tract infection [Recovering/Resolving]
